FAERS Safety Report 9462212 (Version 3)
Quarter: 2013Q4

REPORT INFORMATION
  Report Type: Spontaneous
  Country: US (occurrence: None)
  Receive Date: 20130813
  Receipt Date: 20131003
  Transmission Date: 20140711
  Serious: Yes (Other)
  Sender: FDA-Public Use
  Company Number: ACO_37836_2013

PATIENT
  Age: 55 Year
  Sex: Female
  Weight: 43.09 kg

DRUGS (6)
  1. AMPYRA (DALFAMPRIDINE) TABLET, 10MG [Suspect]
     Indication: PRODUCT USED FOR UNKNOWN INDICATION
     Dates: start: 20121106
  2. AMPYRA (DALFAMPRIDINE) TABLET, 10MG [Suspect]
     Indication: GAIT DISTURBANCE
     Dates: start: 20121106
  3. COPAXONE [Concomitant]
  4. VITAMIN D3 (COLECALCIFEROL) [Concomitant]
  5. VENLAFAXINE (VENLAFAXINE HYDROCHLORIDE) (UNKNOWN) (VENLAFAXINE HYDROCHLORIDE) [Concomitant]
  6. MELATONIN (MELATONIN) [Concomitant]

REACTIONS (2)
  - Loss of consciousness [None]
  - Dehydration [None]
